FAERS Safety Report 15494815 (Version 1)
Quarter: 2018Q4

REPORT INFORMATION
  Report Type: Spontaneous
  Country: US (occurrence: US)
  Receive Date: 20181012
  Receipt Date: 20181012
  Transmission Date: 20190205
  Serious: No
  Sender: FDA-Public Use
  Company Number: US-MAYNE PHARMA-2017MYN001949

PATIENT

DRUGS (4)
  1. OPANA [Concomitant]
     Active Substance: OXYMORPHONE HYDROCHLORIDE
     Indication: PAIN
  2. FENTANYL. [Suspect]
     Active Substance: FENTANYL
     Indication: SURGERY
  3. PERCOCET                           /00446701/ [Concomitant]
     Active Substance: ACETAMINOPHEN\OXYCODONE HYDROCHLORIDE\OXYCODONE TEREPHTHALATE
     Indication: PAIN
  4. FENTANYL. [Suspect]
     Active Substance: FENTANYL
     Indication: FIBROMYALGIA

REACTIONS (3)
  - Dry mouth [Unknown]
  - Sedation complication [Unknown]
  - Tooth loss [Unknown]
